FAERS Safety Report 7557038-5 (Version None)
Quarter: 2011Q2

REPORT INFORMATION
  Report Type: 
  Country: None (occurrence: None)
  Receive Date: 20110620
  Receipt Date: 20110617
  Transmission Date: 20111010
  Serious: Yes (Hospitalization, Disabling)
  Sender: FDA-Public Use
  Company Number: DE-SANOFI-AVENTIS-2011SA020812

PATIENT
  Age: 57 Year
  Sex: Male
  Weight: 65 kg

DRUGS (10)
  1. MULTAQ [Suspect]
     Indication: ATRIAL FIBRILLATION
     Route: 048
     Dates: start: 20100201, end: 20110404
  2. ALL OTHER THERAPEUTIC PRODUCTS [Concomitant]
     Route: 065
     Dates: start: 20110101
  3. ALL OTHER THERAPEUTIC PRODUCTS [Concomitant]
     Route: 065
     Dates: start: 20110101
  4. LEVOFLOXACIN [Concomitant]
     Indication: INFECTION
     Route: 065
     Dates: end: 20110403
  5. ETHYL FUMARATE ZINC AND DIMETHYL FUMARATE AND ETHYL FUMARATE MAGNESIUM [Concomitant]
     Route: 065
     Dates: start: 20110101
  6. MULTAQ [Suspect]
     Indication: PROPHYLAXIS
     Route: 048
     Dates: start: 20100201, end: 20110404
  7. DIGIMERCK [Concomitant]
     Indication: ATRIAL FIBRILLATION
     Route: 048
     Dates: start: 20100201
  8. DIGIMERCK [Concomitant]
     Indication: PROPHYLAXIS
     Route: 048
     Dates: start: 20100201
  9. PANTOPRAZOLE [Concomitant]
     Route: 048
  10. MAGNESIUM [Concomitant]
     Route: 048

REACTIONS (5)
  - COUGH [None]
  - ORGANISING PNEUMONIA [None]
  - DYSPNOEA [None]
  - DERMATITIS PSORIASIFORM [None]
  - RESPIRATORY DISORDER [None]
